FAERS Safety Report 11882251 (Version 1)
Quarter: 2015Q4

REPORT INFORMATION
  Report Type: Spontaneous
  Country: US (occurrence: None)
  Receive Date: 20151230
  Receipt Date: 20151230
  Transmission Date: 20160305
  Serious: Yes (Other)
  Sender: FDA-Public Use
  Company Number: None

PATIENT
  Age: 65 Year
  Sex: Female
  Weight: 93.44 kg

DRUGS (5)
  1. LOSARTIN/HYROCHLOROTHIAZIDE [Concomitant]
  2. NEXIUM [Concomitant]
     Active Substance: ESOMEPRAZOLE MAGNESIUM
     Dosage: 1 PILL ONCE DAILY TAKEN BY MOUTH
  3. METOPROLOL [Concomitant]
     Active Substance: METOPROLOL
  4. BIOTIN [Concomitant]
     Active Substance: BIOTIN
  5. SIMVASTATIN 40 MG ACCORD [Suspect]
     Active Substance: SIMVASTATIN
     Indication: BLOOD CHOLESTEROL
     Route: 048
     Dates: start: 20151127, end: 20151224

REACTIONS (7)
  - Hypoaesthesia oral [None]
  - Arthralgia [None]
  - Insomnia [None]
  - Nocturnal dyspnoea [None]
  - Dizziness exertional [None]
  - Myalgia [None]
  - Paraesthesia [None]

NARRATIVE: CASE EVENT DATE: 20151224
